FAERS Safety Report 15747204 (Version 1)
Quarter: 2018Q4

REPORT INFORMATION
  Report Type: Spontaneous
  Country: US (occurrence: US)
  Receive Date: 20181220
  Receipt Date: 20181220
  Transmission Date: 20190205
  Serious: Yes (Death, Other)
  Sender: FDA-Public Use
  Company Number: US-BECTON DICKINSON-2018BDN00453

PATIENT

DRUGS (3)
  1. DOT PPICC PROV SOLO 5F TL MAX W/3CG [Suspect]
     Active Substance: DEVICE
  2. CHLORAPREP WITH TINT [Suspect]
     Active Substance: CHLORHEXIDINE GLUCONATE\ISOPROPYL ALCOHOL
     Indication: INFECTION PROPHYLAXIS
     Route: 061
  3. CHLORAPREP [Suspect]
     Active Substance: CHLORHEXIDINE GLUCONATE\ISOPROPYL ALCOHOL
     Indication: INFECTION PROPHYLAXIS
     Route: 061

REACTIONS (4)
  - Catheter removal [Recovered/Resolved]
  - Complication of device insertion [Recovered/Resolved]
  - Foreign body [Recovered/Resolved]
  - Sepsis [Fatal]
